FAERS Safety Report 9470623 (Version 5)
Quarter: 2013Q3

REPORT INFORMATION
  Report Type: Spontaneous
  Country: JP (occurrence: JP)
  Receive Date: 20130822
  Receipt Date: 20130920
  Transmission Date: 20140515
  Serious: Yes (Life-Threatening, Hospitalization, Other)
  Sender: FDA-Public Use
  Company Number: JP-PFIZER INC-2013239100

PATIENT
  Age: 61 Year
  Sex: Male
  Weight: 76 kg

DRUGS (9)
  1. CHAMPIX [Suspect]
     Indication: SMOKING CESSATION THERAPY
     Dosage: 0.5 MG, 2X/DAY
     Route: 048
     Dates: start: 20130803, end: 201308
  2. CO-DIO EX [Concomitant]
     Dosage: UNK
     Route: 048
  3. CONIEL [Concomitant]
     Dosage: UNK
     Route: 048
  4. ZYLORIC [Concomitant]
     Dosage: UNK
     Route: 048
  5. LORAMET [Concomitant]
     Dosage: UNK
     Route: 048
  6. DEPAS [Concomitant]
     Dosage: UNK
     Route: 048
  7. PAXIL [Concomitant]
     Dosage: UNK
     Route: 048
  8. MIRADOL [Concomitant]
     Dosage: UNK
     Route: 048
  9. LEXOTAN [Concomitant]
     Dosage: UNK
     Route: 048

REACTIONS (1)
  - Acute hepatic failure [Recovering/Resolving]
